FAERS Safety Report 23282685 (Version 1)
Quarter: 2023Q4

REPORT INFORMATION
  Report Type: Report from Study
  Country: US (occurrence: US)
  Receive Date: 20231211
  Receipt Date: 20231211
  Transmission Date: 20240109
  Serious: Yes (Other)
  Sender: FDA-Public Use
  Company Number: US-AMX-006410

PATIENT
  Age: 67 Year
  Sex: Male

DRUGS (4)
  1. RELYVRIO [Suspect]
     Active Substance: SODIUM PHENYLBUTYRATE\TAURURSODIOL
     Indication: Amyotrophic lateral sclerosis
     Dosage: 1 SACHET ONCE DAILY FOR 3 WEEKS, THEN 1 SACHET TWICE DAILY.
     Route: 048
     Dates: start: 202310
  2. LISINOPRIL [Concomitant]
     Active Substance: LISINOPRIL
  3. RADICAVA [Suspect]
     Active Substance: EDARAVONE
     Indication: Amyotrophic lateral sclerosis
     Dosage: 105 MG/5ML
     Route: 048
     Dates: start: 20230614
  4. PILOCARPINE HYDROCHLORIDE [Concomitant]
     Active Substance: PILOCARPINE HYDROCHLORIDE

REACTIONS (5)
  - Choking sensation [Unknown]
  - Salivary hypersecretion [Unknown]
  - Product use complaint [Unknown]
  - Depressed mood [Unknown]
  - Drooling [Unknown]
